FAERS Safety Report 20539976 (Version 1)
Quarter: 2022Q1

REPORT INFORMATION
  Report Type: Spontaneous
  Country: US (occurrence: US)
  Receive Date: 20220302
  Receipt Date: 20220302
  Transmission Date: 20220424
  Serious: Yes (Other)
  Sender: FDA-Public Use
  Company Number: US-JNJFOC-20210946141

PATIENT

DRUGS (3)
  1. TREMFYA [Suspect]
     Active Substance: GUSELKUMAB
     Indication: Pustular psoriasis
     Route: 065
  2. TREMFYA [Suspect]
     Active Substance: GUSELKUMAB
  3. TREMFYA [Suspect]
     Active Substance: GUSELKUMAB

REACTIONS (5)
  - Atrial fibrillation [Unknown]
  - Psoriasis [Recovering/Resolving]
  - Drug ineffective [Unknown]
  - Off label use [Unknown]
  - Product use in unapproved indication [Unknown]
